FAERS Safety Report 19386682 (Version 1)
Quarter: 2021Q2

REPORT INFORMATION
  Report Type: Spontaneous
  Country: JP (occurrence: JP)
  Receive Date: 20210608
  Receipt Date: 20210608
  Transmission Date: 20210717
  Serious: Yes (Other)
  Sender: FDA-Public Use
  Company Number: JP-PFIZER INC-2021595123

PATIENT
  Age: 71 Year
  Sex: Female
  Weight: 46.7 kg

DRUGS (2)
  1. IDARUBICIN HCL [Suspect]
     Active Substance: IDARUBICIN HYDROCHLORIDE
     Indication: ACUTE MYELOID LEUKAEMIA
     Dosage: UNK
  2. CYTOSINE ARABINOSIDE [Suspect]
     Active Substance: CYTARABINE
     Indication: ACUTE MYELOID LEUKAEMIA
     Dosage: UNK

REACTIONS (3)
  - Liver abscess [Unknown]
  - Pancytopenia [Unknown]
  - Appendicitis [Unknown]
